FAERS Safety Report 7660203-X (Version None)
Quarter: 2011Q3

REPORT INFORMATION
  Report Type: 
  Country: None (occurrence: None)
  Receive Date: 20110805
  Receipt Date: 20110729
  Transmission Date: 20111222
  Serious: Yes (Disabling)
  Sender: FDA-Public Use
  Company Number: PHHY2011CH39949

PATIENT
  Age: 61 Year
  Sex: Male
  Weight: 70 kg

DRUGS (7)
  1. ZOMETA [Suspect]
     Indication: BREAST DISORDER MALE
     Dosage: 4 MG, QMO
     Route: 041
     Dates: start: 20080101, end: 20101201
  2. NALOXONE [Concomitant]
  3. PANTOPRAZOLE [Concomitant]
  4. LYRICA [Concomitant]
  5. PRIMPERAN TAB [Concomitant]
  6. OXYCODONE HCL [Concomitant]
  7. CORTISONE ACETATE [Concomitant]

REACTIONS (4)
  - OSTEITIS [None]
  - OSTEONECROSIS OF JAW [None]
  - OSTEOLYSIS [None]
  - PAIN IN JAW [None]
